FAERS Safety Report 12987673 (Version 1)
Quarter: 2016Q4

REPORT INFORMATION
  Report Type: Spontaneous
  Country: US (occurrence: US)
  Receive Date: 20161130
  Receipt Date: 20161130
  Transmission Date: 20170207
  Serious: Yes (Disabling)
  Sender: FDA-Public Use
  Company Number: None

PATIENT
  Age: 82 Year
  Sex: Female
  Weight: 81.72 kg

DRUGS (1)
  1. LEVAQUIN [Suspect]
     Active Substance: LEVOFLOXACIN
     Indication: PNEUMONIA
     Dosage: ?          QUANTITY:N J.:7/M:P/1.:U.O DLLU LJ;?
     Route: 048
     Dates: start: 20160921, end: 20160925

REACTIONS (7)
  - Insomnia [None]
  - Vitreous floaters [None]
  - Muscular weakness [None]
  - Dry skin [None]
  - Rash generalised [None]
  - Asthenia [None]
  - Blister [None]

NARRATIVE: CASE EVENT DATE: 20160921
